FAERS Safety Report 6366438-0 (Version None)
Quarter: 2009Q3

REPORT INFORMATION
  Report Type: 
  Country: None (occurrence: None)
  Receive Date: 20090921
  Receipt Date: 20090908
  Transmission Date: 20100115
  Serious: Yes (Other)
  Sender: FDA-Public Use
  Company Number: GB-ROCHE-655301

PATIENT
  Age: 2 Year
  Sex: Female

DRUGS (1)
  1. TAMIFLU [Suspect]
     Indication: DRUG USE FOR UNKNOWN INDICATION
     Route: 065
     Dates: start: 20090721, end: 20090726

REACTIONS (9)
  - AMNESIA [None]
  - CONFUSIONAL STATE [None]
  - DYSPHEMIA [None]
  - FEELING ABNORMAL [None]
  - LETHARGY [None]
  - OVERDOSE [None]
  - PERSONALITY CHANGE [None]
  - PETIT MAL EPILEPSY [None]
  - SOCIAL AVOIDANT BEHAVIOUR [None]
